FAERS Safety Report 12536836 (Version 1)
Quarter: 2016Q3

REPORT INFORMATION
  Report Type: Spontaneous
  Country: US (occurrence: US)
  Receive Date: 20160707
  Receipt Date: 20160707
  Transmission Date: 20161109
  Serious: Yes (Other)
  Sender: FDA-Public Use
  Company Number: US-SA-2016SA122111

PATIENT
  Sex: Male

DRUGS (2)
  1. METFORMIN [Concomitant]
     Active Substance: METFORMIN HYDROCHLORIDE
     Route: 065
  2. AMARYL [Suspect]
     Active Substance: GLIMEPIRIDE
     Indication: DIABETES MELLITUS
     Route: 065

REACTIONS (5)
  - Arterial disorder [Unknown]
  - Transient ischaemic attack [Unknown]
  - Product use issue [Unknown]
  - Carotid artery occlusion [Unknown]
  - Infection [Unknown]

NARRATIVE: CASE EVENT DATE: 2015
